FAERS Safety Report 8869644 (Version 1)
Quarter: 2012Q4

REPORT INFORMATION
  Report Type: 
  Country: US (occurrence: US)
  Receive Date: 20121028
  Receipt Date: 20121028
  Transmission Date: 20130627
  Serious: Yes (Other)
  Sender: FDA-Public Use
  Company Number: US-US-EMD SERONO, INC.-7054067

PATIENT
  Age: 25 None
  Sex: Female

DRUGS (2)
  1. REBIF [Suspect]
     Indication: MULTIPLE SCLEROSIS
     Route: 058
     Dates: start: 20080526, end: 201009
  2. REBIF [Suspect]

REACTIONS (3)
  - Prolonged labour [Recovered/Resolved]
  - Normal newborn [Recovered/Resolved]
  - Maternal exposure timing unspecified [Recovered/Resolved]
